FAERS Safety Report 4721120-8 (Version None)
Quarter: 2005Q3

REPORT INFORMATION
  Report Type: 
  Country: None (occurrence: None)
  Receive Date: 20050719
  Receipt Date: 20041121
  Transmission Date: 20060218
  Serious: Yes (Hospitalization)
  Sender: FDA-Public Use
  Company Number: 2004098601

PATIENT
  Age: 60 Year
  Sex: Male

DRUGS (17)
  1. CELEBREX [Suspect]
     Indication: PROCEDURAL PAIN
     Dosage: 200 MG (100 MG,BID  INTERVAL:  EVERY DAY)
     Dates: start: 20041101
  2. IRON (IRON) [Concomitant]
  3. METOPROLOL TARTRATE [Concomitant]
  4. INSULIN LISPRO (INSULIN LISPRO) [Concomitant]
  5. GLIPIZIDE [Concomitant]
  6. SIMVASTATIN [Concomitant]
  7. PANTOPRAZOLE SODIUM [Concomitant]
  8. OXYCODONE HYDROCHLORIDE AND ACETAMINOPHEN [Concomitant]
  9. BISACODYL (BISACODYL) [Concomitant]
  10. MAGNESIUM HYDROXIDE (MAGNESIUM HYDROXIDE) [Concomitant]
  11. DOCUSATE SODIUM (DOCUSATE SODIUM) [Concomitant]
  12. ACETYLSALICYLIC ACID (ACETYLSAICYLIC ACID) [Concomitant]
  13. CODEINE PHOSPHATE AND ACETAMINOPHEN [Concomitant]
  14. MORPHINE [Concomitant]
  15. MIDAZOLAM HCL [Concomitant]
  16. AMLODIPINE BESYLATE [Concomitant]
  17. TEMAZEPAM [Concomitant]

REACTIONS (1)
  - LEUKOPENIA [None]
